FAERS Safety Report 6091764-2 (Version None)
Quarter: 2009Q1

REPORT INFORMATION
  Report Type: 
  Country: None (occurrence: None)
  Receive Date: 20090225
  Receipt Date: 20080529
  Transmission Date: 20090719
  Serious: No
  Sender: FDA-Public Use
  Company Number: A0730209A

PATIENT
  Sex: Male

DRUGS (7)
  1. VALTREX [Suspect]
     Indication: GENITAL HERPES
     Dosage: 500MG PER DAY
     Route: 048
  2. SIMVASTATIN [Concomitant]
  3. LISINOPRIL [Concomitant]
  4. LIPITOR [Concomitant]
  5. ASPIRIN [Concomitant]
  6. LEXAPRO [Concomitant]
  7. LAMICTAL [Concomitant]

REACTIONS (1)
  - SEMEN ANALYSIS ABNORMAL [None]
